FAERS Safety Report 22257614 (Version 1)
Quarter: 2023Q2

REPORT INFORMATION
  Report Type: Spontaneous
  Country: CA (occurrence: CA)
  Receive Date: 20230427
  Receipt Date: 20230427
  Transmission Date: 20230722
  Serious: Yes (Hospitalization)
  Sender: FDA-Public Use
  Company Number: CA-NOVOPROD-1055514

PATIENT
  Age: 66 Year
  Sex: Female
  Weight: 83 kg

DRUGS (2)
  1. OZEMPIC [Suspect]
     Active Substance: SEMAGLUTIDE
     Indication: Type 2 diabetes mellitus
     Dosage: 0.5 MG, QW
     Route: 058
     Dates: start: 20230202, end: 20230302
  2. INFLUENZA VIRUS VACCINE [Suspect]
     Active Substance: INFLUENZA VIRUS VACCINE
     Indication: Antiviral prophylaxis
     Dosage: UNK
     Route: 030
     Dates: start: 20230119, end: 20230119

REACTIONS (3)
  - Hypoglycaemia [Recovered/Resolved with Sequelae]
  - Diabetic gastroenteropathy [Recovered/Resolved with Sequelae]
  - Gastric disorder [Recovered/Resolved with Sequelae]

NARRATIVE: CASE EVENT DATE: 20230302
